FAERS Safety Report 23808932 (Version 1)
Quarter: 2024Q2

REPORT INFORMATION
  Report Type: Spontaneous
  Country: US (occurrence: US)
  Receive Date: 20240502
  Receipt Date: 20240502
  Transmission Date: 20240716
  Serious: Yes (Other)
  Sender: FDA-Public Use
  Company Number: US-GRANULES-US-2024GRALIT00133

PATIENT
  Age: 35 Year
  Sex: Female

DRUGS (1)
  1. AMPHETAMINE SULFATE [Suspect]
     Active Substance: AMPHETAMINE SULFATE
     Indication: Attention deficit hyperactivity disorder
     Route: 065

REACTIONS (2)
  - Pulmonary arteriovenous fistula [Recovered/Resolved]
  - Pulmonary arterial pressure increased [Recovered/Resolved]
